FAERS Safety Report 10957057 (Version 1)
Quarter: 2015Q1

REPORT INFORMATION
  Report Type: Spontaneous
  Country: US (occurrence: None)
  Receive Date: 20150226
  Receipt Date: 20150226
  Transmission Date: 20150721
  Serious: Yes (Other)
  Sender: FDA-Public Use
  Company Number: TPA2012A01301

PATIENT
  Age: 81 Year
  Sex: Male
  Weight: 90.72 kg

DRUGS (4)
  1. STARLIX [Concomitant]
     Active Substance: NATEGLINIDE
  2. ACTOS [Suspect]
     Active Substance: PIOGLITAZONE HYDROCHLORIDE
     Indication: TYPE 2 DIABETES MELLITUS
     Dates: start: 2003, end: 200908
  3. LEVEMIR [Concomitant]
     Active Substance: INSULIN DETEMIR
  4. METFORMIN [Concomitant]
     Active Substance: METFORMIN HYDROCHLORIDE

REACTIONS (3)
  - Urinary incontinence [None]
  - Haematuria [None]
  - Bladder cancer [None]

NARRATIVE: CASE EVENT DATE: 201008
